FAERS Safety Report 20180215 (Version 1)
Quarter: 2021Q4

REPORT INFORMATION
  Report Type: Report from Study
  Country: MY (occurrence: MY)
  Receive Date: 20211214
  Receipt Date: 20211214
  Transmission Date: 20220304
  Serious: Yes (Other)
  Sender: FDA-Public Use
  Company Number: MY-NOVARTISPH-NVSC2021MY133429

PATIENT
  Age: 68 Year
  Sex: Female
  Weight: 38.7 kg

DRUGS (3)
  1. ASCIMINIB [Suspect]
     Active Substance: ASCIMINIB
     Indication: Chronic myeloid leukaemia
     Dosage: 20 MG, BID
     Route: 048
     Dates: start: 20210518, end: 20210524
  2. ASCIMINIB [Suspect]
     Active Substance: ASCIMINIB
     Dosage: 20 MG, QD
     Route: 048
     Dates: start: 20210525, end: 20210603
  3. ASCIMINIB [Suspect]
     Active Substance: ASCIMINIB
     Dosage: 20 MG, BIW
     Route: 048
     Dates: start: 20210703

REACTIONS (5)
  - Pancytopenia [Recovering/Resolving]
  - Full blood count decreased [Unknown]
  - Transformation to acute myeloid leukaemia [Unknown]
  - Fatigue [Recovering/Resolving]
  - Anaemia [Recovering/Resolving]

NARRATIVE: CASE EVENT DATE: 20210525
